FAERS Safety Report 8967643 (Version 1)
Quarter: 2012Q4

REPORT INFORMATION
  Report Type: Spontaneous
  Country: JP (occurrence: None)
  Receive Date: 20121204
  Receipt Date: 20121204
  Transmission Date: 20130627
  Serious: Yes (Other)
  Sender: FDA-Public Use
  Company Number: DSA_61103_2012

PATIENT
  Age: 89 Year
  Sex: Female

DRUGS (6)
  1. DILTIAZEM HYDROCHLORIDE [Suspect]
     Indication: ATRIAL TACHYCARDIA
     Dosage: (frequency unspecified)
  2. DILTIAZEM HYDROCHLORIDE [Suspect]
     Indication: ATRIAL FIBRILLATION
     Dosage: (frequency unspecified)
  3. AMIODARONE HYDROCHLORIDE [Suspect]
     Dosage: (frequency unspecified)
     Route: 048
  4. VERAPAMIL HYDROCHLORIDE [Suspect]
     Dosage: (frequency unspecified)
  5. VERAPAMIL HYDROCHLORIDE [Suspect]
     Dosage: (frequency unspecified)
  6. ANTIBIOTICS [Concomitant]

REACTIONS (2)
  - Bradycardia [None]
  - Device pacing issue [None]
